FAERS Safety Report 18233465 (Version 1)
Quarter: 2020Q3

REPORT INFORMATION
  Report Type: Spontaneous
  Country: BH (occurrence: BH)
  Receive Date: 20200904
  Receipt Date: 20200904
  Transmission Date: 20201103
  Serious: Yes (Hospitalization, Other)
  Sender: FDA-Public Use
  Company Number: BH-MACLEODS PHARMACEUTICALS US LTD-MAC2020027889

PATIENT

DRUGS (3)
  1. LANTUS [Suspect]
     Active Substance: INSULIN GLARGINE
     Indication: DIABETES MELLITUS
     Dosage: UNK
     Route: 065
  2. METFORMIN [Suspect]
     Active Substance: METFORMIN HYDROCHLORIDE
     Indication: DIABETES MELLITUS
     Dosage: UNK
     Route: 065
  3. CLOBETASOL 0.05 % W/W [Suspect]
     Active Substance: CLOBETASOL
     Indication: XEROSIS
     Dosage: UNK UNK, QD, CREAM, DILUTED CLOBETASOL PROPIONATE 0.05% IN AQUEOUS CREAM, 200 G
     Route: 061
     Dates: start: 2015

REACTIONS (4)
  - Secondary adrenocortical insufficiency [Recovered/Resolved]
  - Steroid withdrawal syndrome [Recovered/Resolved]
  - Intentional product misuse [Recovered/Resolved]
  - Hypoglycaemia [Recovered/Resolved]
